FAERS Safety Report 7337424-9 (Version None)
Quarter: 2011Q1

REPORT INFORMATION
  Report Type: 
  Country: None (occurrence: None)
  Receive Date: 20110222
  Receipt Date: 20110207
  Transmission Date: 20110831
  Serious: Yes (Other)
  Sender: FDA-Public Use
  Company Number: 2011MA001275

PATIENT
  Age: 72 Year
  Sex: Female

DRUGS (7)
  1. AMLODIPINE [Concomitant]
  2. ACETAMINOPHEN [Concomitant]
  3. LEVOTHYROXINE SODIUM [Concomitant]
  4. ACYCLOVIR [Suspect]
     Indication: HERPES ZOSTER
     Dosage: 800 MG; 5XD
     Dates: start: 20101125
  5. TRAMADOL [Concomitant]
  6. TRAMADOL HYDROCHLORIDE [Suspect]
     Indication: HERPES ZOSTER
     Dosage: 50 MG; BID
     Dates: start: 20101125
  7. LOSARTAN POTASSIUM [Concomitant]

REACTIONS (7)
  - MALAISE [None]
  - NIGHT SWEATS [None]
  - SYNCOPE [None]
  - BLOOD PRESSURE SYSTOLIC INCREASED [None]
  - INSOMNIA [None]
  - HALLUCINATION, AUDITORY [None]
  - ALOPECIA [None]
